FAERS Safety Report 10883414 (Version 1)
Quarter: 2015Q1

REPORT INFORMATION
  Report Type: Spontaneous
  Country: FR (occurrence: FR)
  Receive Date: 20150303
  Receipt Date: 20150303
  Transmission Date: 20150721
  Serious: Yes (Hospitalization)
  Sender: FDA-Public Use
  Company Number: FR-BAXTER-2015BAX010608

PATIENT
  Age: 69 Year
  Sex: Female

DRUGS (4)
  1. UROMITEXAN 5 G/50 ML, SOLUTION INJECTABLE POUR PERFUSION EN FLACON [Suspect]
     Active Substance: MESNA
     Indication: PRODUCT USED FOR UNKNOWN INDICATION
     Route: 042
     Dates: start: 20150120, end: 20150120
  2. ETOPOSIDE. [Suspect]
     Active Substance: ETOPOSIDE
     Indication: ADJUVANT THERAPY
     Dosage: DAY 3 TO DAY 5
     Route: 042
  3. IFOSFAMIDE. [Suspect]
     Active Substance: IFOSFAMIDE
     Indication: ADJUVANT THERAPY
     Route: 042
     Dates: start: 20150120, end: 20150120
  4. RITUXIMAB [Suspect]
     Active Substance: RITUXIMAB
     Indication: ADJUVANT THERAPY
     Route: 042
     Dates: start: 20150117, end: 20150117

REACTIONS (1)
  - Encephalopathy [Recovered/Resolved]

NARRATIVE: CASE EVENT DATE: 20150120
